FAERS Safety Report 13635752 (Version 1)
Quarter: 2017Q2

REPORT INFORMATION
  Report Type: Spontaneous
  Country: US (occurrence: US)
  Receive Date: 20170608
  Receipt Date: 20170608
  Transmission Date: 20170830
  Serious: Yes (Other)
  Sender: FDA-Public Use
  Company Number: None

PATIENT
  Age: 51 Year
  Sex: Female
  Weight: 76.5 kg

DRUGS (2)
  1. MULTIHANCE [Suspect]
     Active Substance: GADOBENATE DIMEGLUMINE
     Indication: SCAN WITH CONTRAST
     Dosage: ?          OTHER FREQUENCY:DURING MRI;?
     Route: 042
     Dates: start: 20160505
  2. SYNTHROID [Concomitant]
     Active Substance: LEVOTHYROXINE SODIUM

REACTIONS (13)
  - Visual impairment [None]
  - Erythema [None]
  - Headache [None]
  - Anaphylactoid reaction [None]
  - Bronchospasm [None]
  - Paraesthesia [None]
  - Disorientation [None]
  - Swelling face [None]
  - Muscular weakness [None]
  - Oropharyngeal pain [None]
  - Weight decreased [None]
  - Arthralgia [None]
  - Malaise [None]

NARRATIVE: CASE EVENT DATE: 20160505
